FAERS Safety Report 8317905-1 (Version None)
Quarter: 2012Q2

REPORT INFORMATION
  Report Type: 
  Country: None (occurrence: None)
  Receive Date: 20120427
  Receipt Date: 20120416
  Transmission Date: 20120825
  Serious: Yes (Other)
  Sender: FDA-Public Use
  Company Number: FR-SANOFI-AVENTIS-2012SA026508

PATIENT
  Age: 4 Month
  Sex: Male

DRUGS (1)
  1. LASIX [Suspect]
     Dosage: EVERY TWO DAYS
     Route: 048
     Dates: start: 20111209, end: 20120316

REACTIONS (2)
  - OFF LABEL USE [None]
  - NEPHROCALCINOSIS [None]
